FAERS Safety Report 15631403 (Version 1)
Quarter: 2018Q4

REPORT INFORMATION
  Report Type: Spontaneous
  Country: US (occurrence: US)
  Receive Date: 20181119
  Receipt Date: 20181119
  Transmission Date: 20190205
  Serious: No
  Sender: FDA-Public Use
  Company Number: US-BAYER-2018-213901

PATIENT
  Age: 63 Year
  Sex: Male
  Weight: 101.1 kg

DRUGS (2)
  1. MIRALAX [Suspect]
     Active Substance: POLYETHYLENE GLYCOL 3350
     Indication: CONSTIPATION
     Dosage: 1 DF, QD
     Route: 048
     Dates: start: 201810
  2. DILANTIN [Concomitant]
     Active Substance: PHENYTOIN

REACTIONS (3)
  - Off label use [Unknown]
  - Circumstance or information capable of leading to medication error [Unknown]
  - Drug effective for unapproved indication [Unknown]

NARRATIVE: CASE EVENT DATE: 201810
